FAERS Safety Report 4635632-9 (Version None)
Quarter: 2005Q2

REPORT INFORMATION
  Report Type: 
  Country: None (occurrence: None)
  Receive Date: 20050413
  Receipt Date: 20050404
  Transmission Date: 20051028
  Serious: Yes (Hospitalization)
  Sender: FDA-Public Use
  Company Number: 2005AP02127

PATIENT
  Sex: Female

DRUGS (1)
  1. MARCAINE [Suspect]
     Indication: SPINAL ANAESTHESIA
     Dosage: 2.5 ML ED
     Route: 008

REACTIONS (2)
  - HYPOAESTHESIA [None]
  - POST PROCEDURAL COMPLICATION [None]
